FAERS Safety Report 11325054 (Version 1)
Quarter: 2015Q3

REPORT INFORMATION
  Report Type: Report from Study
  Country: DE (occurrence: DE)
  Receive Date: 20150730
  Receipt Date: 20150730
  Transmission Date: 20151125
  Serious: Yes (Hospitalization)
  Sender: FDA-Public Use
  Company Number: DE-BAXALTA-2012BAX025753

PATIENT
  Age: 20 Year
  Sex: Female
  Weight: 66 kg

DRUGS (7)
  1. HUMAN PROTEIN C [Suspect]
     Active Substance: PROTEIN C
     Indication: PROTEIN C DEFICIENCY
     Dosage: UNK
     Route: 042
     Dates: start: 20020114
  2. HUMAN PROTEIN C [Suspect]
     Active Substance: PROTEIN C
     Dosage: 2000IU (INTERNATIONAL UNIT)1X A DAY
     Route: 042
     Dates: start: 20121113, end: 20121113
  3. HUMAN PROTEIN C [Suspect]
     Active Substance: PROTEIN C
     Dosage: 5000IU (INTERNATIONAL UNIT)1X A DAY
     Route: 042
     Dates: start: 20121112, end: 20121112
  4. HUMAN PROTEIN C [Suspect]
     Active Substance: PROTEIN C
     Dosage: DOSE INCREASED
     Route: 042
     Dates: start: 20121111, end: 20121111
  5. HUMAN PROTEIN C [Suspect]
     Active Substance: PROTEIN C
     Dosage: IN THE DAYS PRIOR TO THE EVENT
     Route: 042
  6. HUMAN PROTEIN C [Suspect]
     Active Substance: PROTEIN C
     Dosage: 4000IU (INTERNATIONAL UNIT)
     Route: 042
     Dates: start: 20121114, end: 20121129
  7. HUMAN PROTEIN C [Suspect]
     Active Substance: PROTEIN C
     Dosage: 2000IU (INTERNATIONAL UNIT)1X A DAY
     Route: 042
     Dates: start: 20121110, end: 20121110

REACTIONS (1)
  - Pulmonary embolism [Recovered/Resolved]

NARRATIVE: CASE EVENT DATE: 20121109
